FAERS Safety Report 5386867-1 (Version None)
Quarter: 2007Q3

REPORT INFORMATION
  Report Type: 
  Country: None (occurrence: None)
  Receive Date: 20070713
  Receipt Date: 20070704
  Transmission Date: 20080115
  Serious: Yes (Hospitalization)
  Sender: FDA-Public Use
  Company Number: JP-PFIZER INC-2007042761

PATIENT
  Sex: Female

DRUGS (9)
  1. LIPITOR [Suspect]
     Indication: HYPERLIPIDAEMIA
     Dosage: DAILY DOSE:20MG
     Route: 048
  2. PROGRAF [Suspect]
     Indication: LUPUS NEPHRITIS
     Dosage: DAILY DOSE:1.5MG
     Route: 048
     Dates: start: 20070508, end: 20070514
  3. ASPIRIN [Concomitant]
     Dosage: DAILY DOSE:100MG
     Route: 048
  4. NATEGLINIDE [Concomitant]
     Indication: DIABETES MELLITUS
     Dosage: DAILY DOSE:135MG
     Route: 048
     Dates: end: 20070518
  5. SLOW-K [Concomitant]
     Indication: HYPOKALAEMIA
     Dosage: DAILY DOSE:1200MG
     Route: 048
     Dates: start: 20070505, end: 20070514
  6. PREDONINE [Concomitant]
     Indication: LUPUS NEPHRITIS
     Dosage: DAILY DOSE:40MG
     Route: 048
     Dates: start: 20070425
  7. RENIVACE [Concomitant]
     Indication: LUPUS NEPHRITIS
     Dosage: DAILY DOSE:7.5MG
     Route: 048
     Dates: start: 20070427
  8. LENDORMIN [Concomitant]
     Indication: INSOMNIA
     Dosage: DAILY DOSE:.5MG
     Route: 048
     Dates: start: 20070320, end: 20070521
  9. OMEPRAL [Concomitant]
     Indication: GASTRIC ULCER
     Dosage: DAILY DOSE:20MG
     Route: 048
     Dates: start: 20070320, end: 20070514

REACTIONS (1)
  - ELECTROLYTE IMBALANCE [None]
